FAERS Safety Report 14648463 (Version 2)
Quarter: 2018Q2

REPORT INFORMATION
  Report Type: Spontaneous
  Country: EC (occurrence: EC)
  Receive Date: 20180316
  Receipt Date: 20180509
  Transmission Date: 20180711
  Serious: Yes (Disabling)
  Sender: FDA-Public Use
  Company Number: EC-PFIZER INC-2018104908

PATIENT
  Age: 89 Year
  Sex: Female

DRUGS (3)
  1. XANAX XR [Suspect]
     Active Substance: ALPRAZOLAM
     Indication: ANXIETY
     Dosage: 0.5 MG, UNK
  2. XANAX XR [Suspect]
     Active Substance: ALPRAZOLAM
     Dosage: 0.25 MG, HALF TABLET OF 0.5MG (1X/DAY)
     Dates: start: 201804
  3. XANAX XR [Suspect]
     Active Substance: ALPRAZOLAM
     Dosage: 0.25 MG, HALF TABLET OF 0.5MG (1X/DAY)
     Dates: end: 201803

REACTIONS (3)
  - Drug dispensing error [Unknown]
  - Gait inability [Not Recovered/Not Resolved]
  - Intentional product misuse [Unknown]
